FAERS Safety Report 11394020 (Version 1)
Quarter: 2015Q3

REPORT INFORMATION
  Report Type: Spontaneous
  Country: US (occurrence: None)
  Receive Date: 20150817
  Receipt Date: 20150817
  Transmission Date: 20151125
  Serious: Yes (Life-Threatening)
  Sender: FDA-Public Use
  Company Number: None

PATIENT
  Age: 49 Year
  Sex: Male
  Weight: 68.04 kg

DRUGS (11)
  1. THIOTHIXENE. [Concomitant]
     Active Substance: THIOTHIXENE
  2. CRESTOR [Concomitant]
     Active Substance: ROSUVASTATIN CALCIUM
  3. VITD3 [Concomitant]
  4. HUMOLOG [Concomitant]
  5. GLUCOSE [Concomitant]
     Active Substance: DEXTROSE
  6. ENALAPRIL [Concomitant]
     Active Substance: ENALAPRIL
  7. SUPER B-COMPLEX [Concomitant]
  8. TOUJEO [Suspect]
     Active Substance: INSULIN GLARGINE
     Indication: BLOOD GLUCOSE ABNORMAL
     Dosage: INCORRECT (CHANGE TO 4U IN AM, GIVEN INTO/UNDER THE SKIN
     Route: 042
     Dates: start: 20150811, end: 20150815
  9. VALPROIC ACID. [Concomitant]
     Active Substance: VALPROIC ACID
  10. TOUJEA [Concomitant]
  11. LEVEMIR [Concomitant]
     Active Substance: INSULIN DETEMIR

REACTIONS (3)
  - Blood glucose decreased [None]
  - Product substitution issue [None]
  - Product measured potency issue [None]

NARRATIVE: CASE EVENT DATE: 20150815
